FAERS Safety Report 10838984 (Version 1)
Quarter: 2015Q1

REPORT INFORMATION
  Report Type: Spontaneous
  Country: GR (occurrence: None)
  Receive Date: 20150218
  Receipt Date: 20150218
  Transmission Date: 20150721
  Serious: Yes (Other)
  Sender: FDA-Public Use
  Company Number: 8006967

PATIENT
  Age: 49 Year
  Sex: Female

DRUGS (3)
  1. EUTHYROX [Suspect]
     Active Substance: LEVOTHYROXINE SODIUM
     Indication: THYROIDITIS CHRONIC
     Dosage: THREE YEARS AGO
     Route: 048
  2. SINGULAIR [Concomitant]
     Active Substance: MONTELUKAST SODIUM
  3. INUVAIR (BEKFORM) [Concomitant]

REACTIONS (4)
  - Anxiety [None]
  - Cardiac flutter [None]
  - Tachycardia [None]
  - Accidental overdose [None]

NARRATIVE: CASE EVENT DATE: 20150126
